FAERS Safety Report 8194246-7 (Version None)
Quarter: 2012Q1

REPORT INFORMATION
  Report Type: 
  Country: None (occurrence: None)
  Receive Date: 20120308
  Receipt Date: 20120305
  Transmission Date: 20120608
  Serious: Yes (Hospitalization)
  Sender: FDA-Public Use
  Company Number: DE-GLAXOSMITHKLINE-A0946480A

PATIENT
  Sex: Female

DRUGS (3)
  1. UNKNOWN [Concomitant]
  2. NICORETTE [Suspect]
     Indication: SMOKING CESSATION THERAPY
     Dosage: 4MG SINGLE DOSE
     Route: 002
     Dates: start: 20110531, end: 20110531
  3. NONE [Concomitant]

REACTIONS (7)
  - ANAPHYLACTIC REACTION [None]
  - DRUG INTOLERANCE [None]
  - NAUSEA [None]
  - DYSPNOEA [None]
  - THROAT IRRITATION [None]
  - ANGIOEDEMA [None]
  - URTICARIA [None]
